FAERS Safety Report 7541091-9 (Version None)
Quarter: 2011Q2

REPORT INFORMATION
  Report Type: 
  Country: None (occurrence: None)
  Receive Date: 20110610
  Receipt Date: 20110608
  Transmission Date: 20111010
  Serious: Yes (Hospitalization, Other)
  Sender: FDA-Public Use
  Company Number: CA-ABBOTT-11P-028-0729294-00

PATIENT
  Sex: Female
  Weight: 45.4 kg

DRUGS (3)
  1. HUMIRA [Suspect]
     Indication: CROHN'S DISEASE
     Route: 058
     Dates: start: 20070422
  2. HUMIRA [Suspect]
     Route: 058
     Dates: start: 20110401
  3. ACTONEL [Concomitant]
     Indication: BONE DENSITY ABNORMAL
     Dosage: UNKNOWN
     Route: 048

REACTIONS (9)
  - ABDOMINAL DISTENSION [None]
  - NAUSEA [None]
  - FATIGUE [None]
  - MALAISE [None]
  - WEIGHT DECREASED [None]
  - HAEMOGLOBIN DECREASED [None]
  - COLONIC STENOSIS [None]
  - ABSCESS INTESTINAL [None]
  - PAIN [None]
